FAERS Safety Report 5117942-4 (Version None)
Quarter: 2006Q3

REPORT INFORMATION
  Report Type: 
  Country: None (occurrence: None)
  Receive Date: 20060925
  Receipt Date: 20060911
  Transmission Date: 20061208
  Serious: Yes (Death, Other)
  Sender: FDA-Public Use
  Company Number: T200601007

PATIENT
  Age: 61 Year
  Sex: Female

DRUGS (1)
  1. LIQUID BAROSPERSE (BARIUM SULFATE) SUSPENSION [Suspect]
     Indication: X-RAY GASTROINTESTINAL TRACT

REACTIONS (5)
  - COMA [None]
  - CONVULSION [None]
  - DRUG SCREEN POSITIVE [None]
  - ENCEPHALOPATHY [None]
  - THERAPEUTIC AGENT TOXICITY [None]
